FAERS Safety Report 4984161-1 (Version None)
Quarter: 2006Q2

REPORT INFORMATION
  Report Type: 
  Country: None (occurrence: None)
  Receive Date: 20060427
  Receipt Date: 20060418
  Transmission Date: 20061013
  Serious: Yes (Other)
  Sender: FDA-Public Use
  Company Number: PHBS2006JP05811

PATIENT
  Age: 66 Year
  Sex: Male

DRUGS (3)
  1. VOLTAREN [Suspect]
     Indication: GOUT
     Dosage: 25 MG, TID
     Route: 048
     Dates: start: 20060413, end: 20060417
  2. URINORM [Concomitant]
     Dosage: 50 MG/DAY
     Route: 048
     Dates: start: 20060417, end: 20060417
  3. URALYT [Concomitant]
     Dosage: 6 DF/DAY
     Route: 048
     Dates: start: 20060417, end: 20060417

REACTIONS (5)
  - CHILLS [None]
  - ELECTROLYTE IMBALANCE [None]
  - HYPERURICAEMIA [None]
  - MUSCULOSKELETAL STIFFNESS [None]
  - RHABDOMYOLYSIS [None]
